FAERS Safety Report 4960410-0 (Version None)
Quarter: 2006Q1

REPORT INFORMATION
  Report Type: 
  Country: None (occurrence: None)
  Receive Date: 20060328
  Receipt Date: 20060317
  Transmission Date: 20060701
  Serious: Yes (Hospitalization)
  Sender: FDA-Public Use
  Company Number: 2006038046

PATIENT
  Age: 18 Year
  Sex: Female

DRUGS (4)
  1. ZIPRASIDONE HCL [Suspect]
     Indication: SCHIZOPHRENIA
     Dosage: ORAL
     Route: 048
     Dates: start: 20041126
  2. LORAZEPAM [Concomitant]
  3. RISPERDAL [Concomitant]
  4. FLUOXETINE [Concomitant]

REACTIONS (6)
  - FEAR [None]
  - HALLUCINATION, AUDITORY [None]
  - POLYTRAUMATISM [None]
  - RESTLESSNESS [None]
  - SUICIDAL IDEATION [None]
  - SUICIDE ATTEMPT [None]
